FAERS Safety Report 25699925 (Version 1)
Quarter: 2025Q3

REPORT INFORMATION
  Report Type: Spontaneous
  Country: EU (occurrence: EU)
  Receive Date: 20250819
  Receipt Date: 20250819
  Transmission Date: 20251020
  Serious: Yes (Death, Other)
  Sender: UNIQUE PHARMACEUTICAL LABORATORIES
  Company Number: EU-UNIQUE PHARMACEUTICAL LABORATORIES-20250800047

PATIENT

DRUGS (2)
  1. FLUCONAZOLE [Suspect]
     Active Substance: FLUCONAZOLE
     Indication: Intervertebral discitis
     Route: 065
  2. FLUCONAZOLE [Suspect]
     Active Substance: FLUCONAZOLE
     Indication: Candida infection

REACTIONS (2)
  - Central nervous system infection [Fatal]
  - Disease progression [Fatal]
